FAERS Safety Report 12783867 (Version 1)
Quarter: 2016Q3

REPORT INFORMATION
  Report Type: Spontaneous
  Country: DE (occurrence: DE)
  Receive Date: 20160927
  Receipt Date: 20160927
  Transmission Date: 20161109
  Serious: Yes (Hospitalization)
  Sender: FDA-Public Use
  Company Number: DE-BRACCO-002153

PATIENT
  Age: 5 Day
  Sex: Female
  Weight: .9 kg

DRUGS (12)
  1. GENTAMICIN. [Concomitant]
     Active Substance: GENTAMICIN
  2. MERONEM [Concomitant]
     Active Substance: MEROPENEM
  3. RANITIDIN [Concomitant]
     Active Substance: RANITIDINE HYDROCHLORIDE
  4. NYSTATIN. [Concomitant]
     Active Substance: NYSTATIN
  5. THEOPHYLLIN [Concomitant]
     Active Substance: THEOPHYLLINE ANHYDROUS
  6. SOLUTRAST [Suspect]
     Active Substance: IOPAMIDOL
     Indication: SCAN WITH CONTRAST
     Dosage: DURATION 20 MINS
     Route: 054
     Dates: start: 20160310, end: 20160310
  7. AMPICILLIN [Concomitant]
     Active Substance: AMPICILLIN
  8. VITAMIN D [Concomitant]
     Active Substance: CHOLECALCIFEROL
  9. HUMAN ALBUMIN [Concomitant]
     Active Substance: ALBUMIN HUMAN
  10. FLUCONAZOL [Concomitant]
     Active Substance: FLUCONAZOLE
  11. L-THYROXIN [Concomitant]
     Active Substance: LEVOTHYROXINE SODIUM
  12. OXYGEN. [Concomitant]
     Active Substance: OXYGEN
     Route: 055

REACTIONS (2)
  - Acute kidney injury [Recovering/Resolving]
  - Anuria [Recovered/Resolved]

NARRATIVE: CASE EVENT DATE: 20160310
